FAERS Safety Report 7506211-0 (Version None)
Quarter: 2011Q2

REPORT INFORMATION
  Report Type: 
  Country: None (occurrence: None)
  Receive Date: 20110526
  Receipt Date: 20110511
  Transmission Date: 20111010
  Serious: Yes (Hospitalization)
  Sender: FDA-Public Use
  Company Number: US-JNJFOC-20110505943

PATIENT
  Age: 15 Year
  Sex: Male
  Weight: 45.36 kg

DRUGS (2)
  1. VISINE EYE DROPS [Suspect]
     Route: 048
  2. VISINE EYE DROPS [Suspect]
     Indication: POISONING DELIBERATE
     Route: 048
     Dates: start: 20110509, end: 20110509

REACTIONS (6)
  - MALAISE [None]
  - HALLUCINATION [None]
  - INCORRECT ROUTE OF DRUG ADMINISTRATION [None]
  - HEART RATE INCREASED [None]
  - MYDRIASIS [None]
  - POISONING DELIBERATE [None]
